FAERS Safety Report 13604876 (Version 3)
Quarter: 2017Q3

REPORT INFORMATION
  Report Type: Spontaneous
  Country: US (occurrence: US)
  Receive Date: 20170602
  Receipt Date: 20170724
  Transmission Date: 20171127
  Serious: No
  Sender: FDA-Public Use
  Company Number: US-VIFOR (INTERNATIONAL) INC.-VIT-2017-05417

PATIENT
  Age: 59 Year
  Sex: Female
  Weight: 88 kg

DRUGS (3)
  1. MIRCERA [Suspect]
     Active Substance: METHOXY POLYETHYLENE GLYCOL-EPOETIN BETA
     Indication: HAEMOGLOBIN DECREASED
     Route: 040
     Dates: start: 20170428
  2. MIRCERA [Suspect]
     Active Substance: METHOXY POLYETHYLENE GLYCOL-EPOETIN BETA
     Route: 040
     Dates: start: 20170512
  3. VENOFER [Suspect]
     Active Substance: IRON SUCROSE
     Indication: PRODUCT USED FOR UNKNOWN INDICATION
     Route: 040
     Dates: start: 2017

REACTIONS (3)
  - Rash [Recovered/Resolved]
  - Chest pain [Recovered/Resolved]
  - Headache [Recovered/Resolved]

NARRATIVE: CASE EVENT DATE: 2017
